FAERS Safety Report 6992645-X (Version None)
Quarter: 2010Q3

REPORT INFORMATION
  Report Type: 
  Country: None (occurrence: None)
  Receive Date: 20100916
  Receipt Date: 20100916
  Transmission Date: 20110219
  Serious: Yes (Other)
  Sender: FDA-Public Use
  Company Number: None

PATIENT
  Age: 20 Year
  Sex: Male
  Weight: 61.2356 kg

DRUGS (1)
  1. CYMBALTA [Suspect]
     Dosage: 90MG ONCE A DAY PO
     Route: 048
     Dates: start: 20100623, end: 20100915

REACTIONS (5)
  - DIZZINESS [None]
  - DRUG DOSE OMISSION [None]
  - FATIGUE [None]
  - MIGRAINE [None]
  - PARAESTHESIA [None]
